FAERS Safety Report 12631195 (Version 2)
Quarter: 2016Q3

REPORT INFORMATION
  Report Type: Spontaneous
  Country: US (occurrence: US)
  Receive Date: 20160808
  Receipt Date: 20160808
  Transmission Date: 20161109
  Serious: No
  Sender: FDA-Public Use
  Company Number: US-BEH-2015052701

PATIENT
  Sex: Female
  Weight: 64 kg

DRUGS (29)
  1. HIZENTRA [Suspect]
     Active Substance: HUMAN IMMUNOGLOBULIN G
     Indication: IMMUNODEFICIENCY COMMON VARIABLE
     Route: 058
  2. VALIUM [Concomitant]
     Active Substance: DIAZEPAM
  3. NEXIUM [Concomitant]
     Active Substance: ESOMEPRAZOLE MAGNESIUM
  4. PROCRIT [Concomitant]
     Active Substance: ERYTHROPOIETIN
  5. PROVIGIL [Concomitant]
     Active Substance: MODAFINIL
  6. CALCIUM [Concomitant]
     Active Substance: CALCIUM
  7. MULTIVITAMIN [Concomitant]
     Active Substance: VITAMINS
  8. ACYCLOVIR. [Concomitant]
     Active Substance: ACYCLOVIR
  9. EPIPEN [Concomitant]
     Active Substance: EPINEPHRINE
  10. LMX [Concomitant]
     Active Substance: LIDOCAINE
  11. SYNTHROID [Concomitant]
     Active Substance: LEVOTHYROXINE SODIUM
  12. WELLBUTRIN [Concomitant]
     Active Substance: BUPROPION HYDROCHLORIDE
  13. MELOXICAM. [Concomitant]
     Active Substance: MELOXICAM
  14. PROAIR HFA [Concomitant]
     Active Substance: ALBUTEROL SULFATE
  15. SUDAFED [Concomitant]
     Active Substance: PSEUDOEPHEDRINE HYDROCHLORIDE
  16. FISH OIL [Concomitant]
     Active Substance: FISH OIL
  17. HIZENTRA [Suspect]
     Active Substance: HUMAN IMMUNOGLOBULIN G
     Route: 058
  18. HIZENTRA [Suspect]
     Active Substance: HUMAN IMMUNOGLOBULIN G
     Route: 058
  19. LORATADINE. [Concomitant]
     Active Substance: LORATADINE
  20. IMITREX [Concomitant]
     Active Substance: SUMATRIPTAN SUCCINATE
  21. AMITRIPTYLINE [Concomitant]
     Active Substance: AMITRIPTYLINE
  22. DIPHENHYDRAMINE. [Concomitant]
     Active Substance: DIPHENHYDRAMINE
  23. OXYCONTIN [Concomitant]
     Active Substance: OXYCODONE HYDROCHLORIDE
  24. CYMBALTA [Concomitant]
     Active Substance: DULOXETINE HYDROCHLORIDE
  25. ACETAMINOPHEN. [Concomitant]
     Active Substance: ACETAMINOPHEN
  26. AMBIEN [Concomitant]
     Active Substance: ZOLPIDEM TARTRATE
  27. INFED [Concomitant]
     Active Substance: IRON DEXTRAN
  28. CARAFATE [Concomitant]
     Active Substance: SUCRALFATE
  29. PERCOCET [Concomitant]
     Active Substance: ACETAMINOPHEN\OXYCODONE HYDROCHLORIDE

REACTIONS (2)
  - Muscle spasms [Unknown]
  - Restless legs syndrome [Unknown]
